FAERS Safety Report 8161476-X (Version None)
Quarter: 2012Q1

REPORT INFORMATION
  Report Type: 
  Country: None (occurrence: None)
  Receive Date: 20120224
  Receipt Date: 20111216
  Transmission Date: 20120608
  Serious: No
  Sender: FDA-Public Use
  Company Number: US-MYLANLABS-2011S1026036

PATIENT
  Age: 42 Year
  Sex: Female

DRUGS (4)
  1. PERPHENAZINE [Suspect]
  2. ALPRAZOLAM [Suspect]
  3. BOB HARPERS SMART 7 DAY CLEANSE [Suspect]
     Dates: start: 20111018, end: 20111001
  4. LEXAPRO [Suspect]

REACTIONS (2)
  - THROAT TIGHTNESS [None]
  - FEELING ABNORMAL [None]
